FAERS Safety Report 4717150-2 (Version None)
Quarter: 2005Q3

REPORT INFORMATION
  Report Type: 
  Country: None (occurrence: None)
  Receive Date: 20050719
  Receipt Date: 20050706
  Transmission Date: 20060218
  Serious: Yes (Hospitalization)
  Sender: FDA-Public Use
  Company Number: ES-GLAXOSMITHKLINE-B0387354A

PATIENT
  Age: 3 Year
  Sex: Female

DRUGS (5)
  1. AMOXICILLIN [Suspect]
     Indication: TONSILLITIS
     Route: 048
     Dates: start: 20050602, end: 20050607
  2. AUGMENTIN '125' [Suspect]
     Indication: PNEUMONIA
     Dosage: 15ML PER DAY
     Route: 065
     Dates: start: 20050607, end: 20050612
  3. METAMIZOLE MAGNESIUM [Suspect]
     Route: 065
     Dates: start: 20050602
  4. IBUPROFEN [Suspect]
     Route: 065
     Dates: start: 20050602
  5. ACETAMINOPHEN [Suspect]
     Route: 065

REACTIONS (8)
  - ASTHENIA [None]
  - FACIAL PALSY [None]
  - HEMIPLEGIA [None]
  - ISCHAEMIA [None]
  - PAIN [None]
  - PAIN IN EXTREMITY [None]
  - PNEUMONIA [None]
  - SOMNOLENCE [None]
